FAERS Safety Report 23874516 (Version 2)
Quarter: 2024Q2

REPORT INFORMATION
  Report Type: Spontaneous
  Country: FR (occurrence: FR)
  Receive Date: 20240520
  Receipt Date: 20240627
  Transmission Date: 20240716
  Serious: Yes (Life-Threatening, Other)
  Sender: FDA-Public Use
  Company Number: None

PATIENT
  Age: 64 Year
  Sex: Male
  Weight: 67.8 kg

DRUGS (1)
  1. NOVORAPID [Suspect]
     Active Substance: INSULIN ASPART
     Indication: Hyperkalaemia
     Dosage: 1000 IU, QD
     Route: 042
     Dates: start: 20240501

REACTIONS (5)
  - Hypoglycaemic coma [Recovered/Resolved]
  - Hypokalaemia [Recovered/Resolved]
  - Cardiogenic shock [Recovered/Resolved]
  - Incorrect dosage administered [Unknown]
  - Product use in unapproved indication [Unknown]

NARRATIVE: CASE EVENT DATE: 20240501
